FAERS Safety Report 9377325 (Version 2)
Quarter: 2013Q3

REPORT INFORMATION
  Report Type: Spontaneous
  Country: US (occurrence: US)
  Receive Date: 20130701
  Receipt Date: 20130731
  Transmission Date: 20140515
  Serious: Yes (Other)
  Sender: FDA-Public Use
  Company Number: PHEH2013US013750

PATIENT
  Sex: Male

DRUGS (7)
  1. EXFORGE [Suspect]
     Dosage: 1 DF, (320 MG VALS AND 5 MG AMLO), UNK
     Dates: start: 20101130
  2. LOTREL [Suspect]
     Dosage: UNK UKN, UNK
  3. ATENOLOL [Suspect]
     Dosage: UNK UKN, UNK
  4. LOSARTAN [Suspect]
     Dosage: UNK UKN, UNK
  5. CLONIDINE [Suspect]
     Dosage: UNK UKN, TID
  6. ATENOL [Suspect]
     Dosage: UNK
  7. D3 [Suspect]
     Dosage: UNK

REACTIONS (7)
  - Goitre [Unknown]
  - General physical condition abnormal [Unknown]
  - Gastric disorder [Unknown]
  - Pain [Unknown]
  - Blood pressure increased [Unknown]
  - Fatigue [Unknown]
  - Dizziness [Unknown]
